FAERS Safety Report 17296606 (Version 2)
Quarter: 2020Q1

REPORT INFORMATION
  Report Type: Report from Study
  Country: US (occurrence: US)
  Receive Date: 20200122
  Receipt Date: 20200219
  Transmission Date: 20200409
  Serious: Yes (Death)
  Sender: FDA-Public Use
  Company Number: US-ROCHE-2526286

PATIENT
  Sex: Female

DRUGS (2)
  1. AVASTIN [Suspect]
     Active Substance: BEVACIZUMAB
     Indication: OVARIAN CANCER
     Dosage: INFUSE 1050 MG INTRAVENOUSLY EVERY 3 WEEK
     Route: 042
     Dates: start: 20190827
  2. AVASTIN [Suspect]
     Active Substance: BEVACIZUMAB
     Indication: MALIGNANT PERITONEAL NEOPLASM
     Dosage: INFUSE 1050 MG INTRAVENOUSLY EVERY 3 WEEK(S)
     Route: 042

REACTIONS (1)
  - Death [Fatal]
